FAERS Safety Report 24277221 (Version 4)
Quarter: 2024Q4

REPORT INFORMATION
  Report Type: Report from Study
  Country: CO (occurrence: CO)
  Receive Date: 20240903
  Receipt Date: 20241108
  Transmission Date: 20250115
  Serious: Yes (Life-Threatening, Other)
  Sender: NOVARTIS
  Company Number: CO-002147023-NVSC2024CO176612

PATIENT
  Sex: Female
  Weight: 65 kg

DRUGS (13)
  1. KISQALI [Suspect]
     Active Substance: RIBOCICLIB
     Indication: Breast cancer metastatic
     Dosage: 600 MG, QD
     Route: 048
     Dates: start: 20240829
  2. KISQALI [Suspect]
     Active Substance: RIBOCICLIB
     Indication: Breast cancer
     Dosage: 600 MG, QD
     Route: 048
  3. KISQALI [Suspect]
     Active Substance: RIBOCICLIB
     Indication: Hormone receptor positive HER2 negative breast cancer
  4. FEMARA [Suspect]
     Active Substance: LETROZOLE
     Indication: Hormone receptor positive HER2 negative breast cancer
     Dosage: 2.5 MG, QD
     Route: 048
     Dates: start: 20240829
  5. FEMARA [Suspect]
     Active Substance: LETROZOLE
     Indication: Breast cancer metastatic
  6. FEMARA [Suspect]
     Active Substance: LETROZOLE
     Indication: Breast cancer
  7. LOSARTAN [Concomitant]
     Active Substance: LOSARTAN
     Indication: Hypertension
     Dosage: 50 MG (EVERY 12 HOURS) (ONE IN THE  MORNING AND  ANOTHER AT  NIGHT)
     Route: 065
  8. ATORVASTATIN [Concomitant]
     Active Substance: ATORVASTATIN
     Indication: Hypercholesterolaemia
     Dosage: 20 MG, QD
     Route: 065
  9. ATORVASTATIN [Concomitant]
     Active Substance: ATORVASTATIN
     Dosage: 40 MG, QD (AT NIGHT)
     Route: 065
  10. MELATONIN [Concomitant]
     Active Substance: MELATONIN
     Indication: Insomnia
     Dosage: 3 MG, QD
     Route: 065
  11. MELATONIN [Concomitant]
     Active Substance: MELATONIN
     Dosage: 5 MG
     Route: 065
  12. PANTOPRAX [Concomitant]
     Indication: Gastritis
     Dosage: 40 MG (EVERY 12 HOURS)
     Route: 065
  13. ESOMEPRAZOLE [Concomitant]
     Active Substance: ESOMEPRAZOLE
     Indication: Product used for unknown indication
     Dosage: 40 MG, Q12H
     Route: 065

REACTIONS (10)
  - Feeling abnormal [Not Recovered/Not Resolved]
  - Nausea [Not Recovered/Not Resolved]
  - Dizziness [Not Recovered/Not Resolved]
  - Vomiting [Unknown]
  - Headache [Unknown]
  - Head discomfort [Unknown]
  - Diarrhoea [Unknown]
  - Dysstasia [Unknown]
  - Feeding disorder [Unknown]
  - Malaise [Unknown]
